FAERS Safety Report 4738435-X (Version None)
Quarter: 2005Q3

REPORT INFORMATION
  Report Type: 
  Country: None (occurrence: None)
  Receive Date: 20050728
  Receipt Date: 20050421
  Transmission Date: 20060218
  Serious: No
  Sender: FDA-Public Use
  Company Number: 200513396US

PATIENT
  Sex: Female

DRUGS (1)
  1. KETEK [Suspect]
     Dosage: 800 MG ONCE
     Dates: start: 20050401, end: 20050401

REACTIONS (4)
  - DIPLOPIA [None]
  - VERTIGO [None]
  - VISION BLURRED [None]
  - VISUAL DISTURBANCE [None]
